FAERS Safety Report 24943195 (Version 3)
Quarter: 2025Q3

REPORT INFORMATION
  Report Type: Spontaneous
  Country: JP (occurrence: JP)
  Receive Date: 20250207
  Receipt Date: 20250729
  Transmission Date: 20251021
  Serious: Yes (Other)
  Sender: ALEXION PHARMACEUTICALS
  Company Number: JP-ASTRAZENECA-250011465_012620_P_1

PATIENT
  Age: 47 Year
  Sex: Female
  Weight: 52 kg

DRUGS (5)
  1. TRUQAP [Suspect]
     Active Substance: CAPIVASERTIB
     Indication: Breast cancer recurrent
     Dosage: 2 TABLETS OF 200 MG TWICE DAILY (DAILY DOSE ON THE DAY OF ADMINISTRATION IS 800 MG) 4-DAYS-ON, 3-DAYS-OFF
     Dates: start: 20241203
  2. TRUQAP [Suspect]
     Active Substance: CAPIVASERTIB
     Dosage: 400 MILLIGRAM, BID
     Dates: start: 20241203
  3. FASLODEX [Suspect]
     Active Substance: FULVESTRANT
     Indication: Breast cancer recurrent
  4. FASLODEX [Suspect]
     Active Substance: FULVESTRANT
  5. UNSPECIFIED INGREDIENT [Concomitant]
     Active Substance: UNSPECIFIED INGREDIENT
     Indication: Breast cancer recurrent
     Route: 065

REACTIONS (5)
  - Mental impairment [Recovered/Resolved]
  - Thinking abnormal [Recovered/Resolved]
  - Speech disorder [Recovered/Resolved]
  - Memory impairment [Recovering/Resolving]
  - Thinking abnormal [Recovering/Resolving]

NARRATIVE: CASE EVENT DATE: 20241201
